FAERS Safety Report 25430839 (Version 4)
Quarter: 2025Q4

REPORT INFORMATION
  Report Type: Spontaneous
  Country: JP (occurrence: JP)
  Receive Date: 20250612
  Receipt Date: 20251023
  Transmission Date: 20260118
  Serious: Yes (Hospitalization, Other)
  Sender: MERCK SHARP & DOHME LLC
  Company Number: JP-009507513-2280902

PATIENT
  Age: 8 Decade
  Sex: Male

DRUGS (2)
  1. KEYTRUDA [Suspect]
     Active Substance: PEMBROLIZUMAB
     Indication: Non-small cell lung cancer stage IV
     Route: 041
     Dates: start: 202412, end: 2025
  2. KEYTRUDA [Suspect]
     Active Substance: PEMBROLIZUMAB
     Indication: Non-small cell lung cancer stage IV
     Route: 041
     Dates: start: 2025, end: 2025

REACTIONS (5)
  - Herpes zoster [Recovered/Resolved]
  - Proteinuria [Unknown]
  - Immune-mediated hypothyroidism [Recovering/Resolving]
  - Therapy partial responder [Unknown]
  - Urinary occult blood [Unknown]

NARRATIVE: CASE EVENT DATE: 20250101
